FAERS Safety Report 5870915-6 (Version None)
Quarter: 2008Q3

REPORT INFORMATION
  Report Type: 
  Country: None (occurrence: None)
  Receive Date: 20080904
  Receipt Date: 20080827
  Transmission Date: 20090109
  Serious: Yes (Other)
  Sender: FDA-Public Use
  Company Number: FR-ASTRAZENECA-2008CG01271

PATIENT
  Age: 30149 Day
  Sex: Male

DRUGS (6)
  1. CRESTOR [Suspect]
     Indication: HYPERCHOLESTEROLAEMIA
     Route: 048
     Dates: start: 20060201, end: 20080822
  2. ASPIRIN [Concomitant]
     Dates: start: 19980101
  3. CELECTOL [Concomitant]
  4. OFLOCET [Concomitant]
     Indication: PROSTATITIS
     Route: 048
     Dates: start: 20080822
  5. BI-PROFENID [Concomitant]
     Indication: PROSTATITIS
     Route: 048
     Dates: start: 20080822, end: 20080824
  6. OGAST [Concomitant]
     Indication: GASTROOESOPHAGEAL REFLUX DISEASE

REACTIONS (2)
  - MYALGIA [None]
  - TENDON PAIN [None]
